FAERS Safety Report 9440147 (Version 1)
Quarter: 2013Q3

REPORT INFORMATION
  Report Type: Spontaneous
  Country: DE (occurrence: DE)
  Receive Date: 20130805
  Receipt Date: 20130805
  Transmission Date: 20140515
  Serious: Yes (Congenital Anomaly)
  Sender: FDA-Public Use
  Company Number: DE-MYLANLABS-2013S1016350

PATIENT
  Age: 1 Day
  Sex: Male
  Weight: 2.8 kg

DRUGS (6)
  1. RAMIPRIL [Suspect]
     Route: 064
  2. PRAVASTATIN [Suspect]
     Route: 064
  3. CLOPIDOGREL [Suspect]
     Dosage: 75 [MG/D ]
     Route: 064
  4. NEPRESOL /00017902/ [Concomitant]
     Dosage: PROBABLY UNTIL DELIVERY
     Route: 064
  5. METOPROLOL [Concomitant]
     Dosage: PROBABLY UNTIL DELIVERY
     Route: 064
  6. ACETYLSALICYLIC ACID [Concomitant]
     Route: 064

REACTIONS (6)
  - Aorta hypoplasia [Recovered/Resolved with Sequelae]
  - Coarctation of the aorta [Recovered/Resolved with Sequelae]
  - Mitral valve hypoplasia [Recovered/Resolved with Sequelae]
  - Atrial septal defect [Recovered/Resolved with Sequelae]
  - Exposure during pregnancy [Recovered/Resolved]
  - Aortic valve stenosis [Recovered/Resolved with Sequelae]
